FAERS Safety Report 12985964 (Version 4)
Quarter: 2019Q3

REPORT INFORMATION
  Report Type: Report from Study
  Country: NL (occurrence: NL)
  Receive Date: 20161130
  Receipt Date: 20190827
  Transmission Date: 20191004
  Serious: Yes (Hospitalization, Other)
  Sender: FDA-Public Use
  Company Number: NL-AMGEN-NLDSL2016167822

PATIENT
  Age: 74 Year
  Sex: Female

DRUGS (20)
  1. XGEVA [Suspect]
     Active Substance: DENOSUMAB
     Indication: PROPHYLAXIS
     Dosage: 120 MILLIGRAM (1.7 ML), Q4WK
     Route: 058
  2. FENTANYL. [Concomitant]
     Active Substance: FENTANYL
     Dosage: 200 MICROGRAM
     Route: 060
  3. CALCIUM CARBONATE W/COLECALCIFEROL [Concomitant]
     Active Substance: CALCIUM CARBONATE\CHOLECALCIFEROL
     Dosage: 1.25G/800IE (500MG CA), QD
  4. XGEVA [Suspect]
     Active Substance: DENOSUMAB
     Dosage: UNK
     Route: 058
  5. CARBOMER [Concomitant]
     Active Substance: CARBOMER
     Dosage: 2 MILLIGRAM PER GRAM (CARBOMEER 980) TUBE, QD
  6. SPIRONOLACTON [Concomitant]
     Active Substance: SPIRONOLACTONE
     Dosage: 25 MILLIGRAM, QD
  7. XGEVA [Suspect]
     Active Substance: DENOSUMAB
     Dosage: UNK
     Route: 058
  8. ESOMEPRAZOLE. [Concomitant]
     Active Substance: ESOMEPRAZOLE MAGNESIUM
     Dosage: 20 MILLIGRAM, QD
  9. FYTOMENADION [Concomitant]
     Dosage: 10 MILLIGRAM PER MILLILITRE (2W1ML)
  10. BETAMETHASON [BETAMETHASONE] [Concomitant]
     Active Substance: BETAMETHASONE
     Dosage: 0.5 MILLIGRAM PER GRAM, QD
  11. FUROSEMIDE. [Concomitant]
     Active Substance: FUROSEMIDE
     Dosage: 20 MILLIGRAM, QD
  12. KETOCONAZOL [Concomitant]
     Active Substance: KETOCONAZOLE
     Dosage: 20 MILLIGRAM PER GRAM, 2D
  13. XGEVA [Suspect]
     Active Substance: DENOSUMAB
     Dosage: UNK
     Route: 058
  14. FENTANYL. [Concomitant]
     Active Substance: FENTANYL
     Dosage: 12UG/HR, 1X3D1PL,PLASTER 12UG/HR (SANDOZ), 1X3D1PL, TABLET 200UG,
  15. FULVESTRANT. [Concomitant]
     Active Substance: FULVESTRANT
     Dosage: 250MG=5ML ,50 MILLIGRAM PER MILLILITRE (WWSP 250MG=5ML)
  16. HYPROMELLOSE [Concomitant]
     Active Substance: HYPROMELLOSES
     Dosage: 3.2 MILLIGRAM PER MILLILITRE (FL 10ML)
  17. PALBOCICLIB [Concomitant]
     Active Substance: PALBOCICLIB
     Dosage: 125 MILLIGRAM, QD
  18. CLONIDINE. [Concomitant]
     Active Substance: CLONIDINE
     Dosage: 0.025 MILLIGRAM, BID
  19. AMITRIPTYLINE [Concomitant]
     Active Substance: AMITRIPTYLINE
     Dosage: 25 MILLIGRAM (28.3 MILLIGRAM AMITRIPT. HCL), QD
  20. MACROGOL [Concomitant]
     Active Substance: POLYETHYLENE GLYCOLS
     Dosage: UNK UNK, QD

REACTIONS (4)
  - Intervertebral disc protrusion [Unknown]
  - Thrombosis [Recovering/Resolving]
  - Rash erythematous [Unknown]
  - Peripheral swelling [Unknown]

NARRATIVE: CASE EVENT DATE: 2016
